FAERS Safety Report 4716447-X (Version None)
Quarter: 2005Q3

REPORT INFORMATION
  Report Type: 
  Country: None (occurrence: None)
  Receive Date: 20050719
  Receipt Date: 20050615
  Transmission Date: 20060218
  Serious: Yes (Hospitalization)
  Sender: FDA-Public Use
  Company Number: US-RB-1881-2005

PATIENT
  Sex: Female

DRUGS (9)
  1. SUBOXONE [Suspect]
     Indication: DRUG DEPENDENCE
     Route: 060
     Dates: start: 20050628, end: 20050629
  2. SUBOXONE [Suspect]
     Route: 060
     Dates: start: 20050629, end: 20050630
  3. SUBOXONE [Suspect]
     Route: 060
     Dates: start: 20050630
  4. MEDICINALPRODUCT NOT SPECIFIED BY SENDER [Concomitant]
     Indication: DEPRESSION
     Route: 048
  5. MIRTAZAPINE [Concomitant]
     Indication: DEPRESSION
     Route: 048
  6. SERTRALINE HYDROCHLORIDE [Concomitant]
     Indication: DEPRESSION
     Route: 048
  7. QUETIAPINE FUMARATE [Concomitant]
     Indication: ANTIPSYCHOTIC DRUG LEVEL
     Route: 048
  8. LANSOPRAZOLE [Concomitant]
     Route: 048
  9. LORAZEPAM [Concomitant]
     Indication: ANXIETY

REACTIONS (1)
  - GRAND MAL CONVULSION [None]
